FAERS Safety Report 5127165-0 (Version None)
Quarter: 2006Q4

REPORT INFORMATION
  Report Type: 
  Country: None (occurrence: None)
  Receive Date: 20061013
  Receipt Date: 20060710
  Transmission Date: 20070319
  Serious: Yes (Other)
  Sender: FDA-Public Use
  Company Number: US-BRISTOL-MYERS SQUIBB COMPANY-13539671

PATIENT
  Age: 57 Year
  Sex: Female

DRUGS (3)
  1. KENALOG-40 [Suspect]
     Indication: ANTIINFLAMMATORY THERAPY
     Dosage: THE INJECTION WAS INTRAVITREAL.
     Route: 047
     Dates: start: 20060706, end: 20060706
  2. MULTI-VITAMIN [Concomitant]
  3. ESTROGENS SOL/INJ [Concomitant]

REACTIONS (1)
  - ENDOPHTHALMITIS [None]
